FAERS Safety Report 7816197-7 (Version None)
Quarter: 2011Q4

REPORT INFORMATION
  Report Type: 
  Country: None (occurrence: None)
  Receive Date: 20111015
  Receipt Date: 20111004
  Transmission Date: 20120403
  Serious: Yes (Hospitalization)
  Sender: FDA-Public Use
  Company Number: US-ROCHE-734237

PATIENT
  Sex: Male
  Weight: 64.8 kg

DRUGS (12)
  1. METOPROLOL TARTRATE [Concomitant]
  2. VEMURAFENIB [Suspect]
     Dosage: DOSE REDUCED.  PERMANENTLY DISCONTINUED.
     Route: 048
     Dates: start: 20100519, end: 20101011
  3. NORVASC [Concomitant]
  4. VICODIN [Concomitant]
     Dosage: TDD:5/500MG
  5. VEMURAFENIB [Suspect]
     Indication: METASTATIC MALIGNANT MELANOMA
     Dosage: PERMANENTLY DISCONTINUED
     Route: 048
  6. VEMURAFENIB [Suspect]
  7. METOPROLOL TARTRATE [Concomitant]
  8. NORVASC [Concomitant]
  9. ASPIRIN [Concomitant]
  10. MEGACE [Concomitant]
  11. LISINOPRIL [Concomitant]
     Dates: start: 20080301, end: 20100428
  12. ASPIRIN [Concomitant]

REACTIONS (2)
  - FATIGUE [None]
  - DEHYDRATION [None]
